FAERS Safety Report 12361240 (Version 2)
Quarter: 2019Q4

REPORT INFORMATION
  Report Type: Spontaneous
  Country: US (occurrence: US)
  Receive Date: 20160512
  Receipt Date: 20191213
  Transmission Date: 20200122
  Serious: No
  Sender: FDA-Public Use
  Company Number: US-UCBSA-2015029907

PATIENT
  Age: 52 Year
  Sex: Female

DRUGS (1)
  1. CIMZIA [Suspect]
     Active Substance: CERTOLIZUMAB PEGOL
     Indication: CROHN^S DISEASE
     Dosage: 400 MG, EV 4 WEEKS
     Route: 058

REACTIONS (7)
  - Hyperhidrosis [Unknown]
  - Chills [Unknown]
  - Nausea [Unknown]
  - Arthralgia [Unknown]
  - Pain [Unknown]
  - Vomiting [Unknown]
  - Diarrhoea [Unknown]
